FAERS Safety Report 8524289-2 (Version None)
Quarter: 2012Q3

REPORT INFORMATION
  Report Type: 
  Country: None (occurrence: None)
  Receive Date: 20120716
  Receipt Date: 20120716
  Transmission Date: 20120928
  Serious: Yes (Other)
  Sender: FDA-Public Use
  Company Number: None

PATIENT

DRUGS (1)
  1. TOVIAZ [Suspect]
     Indication: BLADDER DISORDER
     Dosage: 4 MG, ONCE A DAY, PO
     Route: 048

REACTIONS (3)
  - OEDEMA PERIPHERAL [None]
  - DRY MOUTH [None]
  - JOINT SWELLING [None]
